FAERS Safety Report 9709403 (Version 1)
Quarter: 2013Q4

REPORT INFORMATION
  Report Type: Spontaneous
  Country: DE (occurrence: DE)
  Receive Date: 20131126
  Receipt Date: 20131126
  Transmission Date: 20140711
  Serious: Yes (Other)
  Sender: FDA-Public Use
  Company Number: DE-009507513-1311DEU009399

PATIENT
  Age: 55 Year
  Sex: Female

DRUGS (3)
  1. REMERGIL [Suspect]
     Dosage: 15MG 1DAY
     Route: 048
     Dates: start: 20130228, end: 20130303
  2. REMERGIL [Suspect]
     Dosage: 30MG 1 DAY
     Route: 048
     Dates: start: 20130304, end: 20130306
  3. REMERGIL [Suspect]
     Dosage: 15MG 1 DAY
     Route: 048
     Dates: start: 20130307, end: 20130309

REACTIONS (1)
  - Restless legs syndrome [Recovered/Resolved]
